FAERS Safety Report 5692442-1 (Version None)
Quarter: 2008Q2

REPORT INFORMATION
  Report Type: 
  Country: None (occurrence: None)
  Receive Date: 20080402
  Receipt Date: 20070911
  Transmission Date: 20081010
  Serious: No
  Sender: FDA-Public Use
  Company Number: US-BAYER-US-2007-034150

PATIENT
  Age: 49 Year
  Sex: Female
  Weight: 56 kg

DRUGS (3)
  1. LEUKINE [Suspect]
     Indication: NEUTROPENIA
     Route: 058
     Dates: start: 20070522, end: 20070522
  2. VICODIN [Concomitant]
     Route: 048
  3. KLONOPIN [Concomitant]
     Dosage: UNIT DOSE: 1 MG
     Route: 048

REACTIONS (2)
  - NAUSEA [None]
  - PAIN [None]
